FAERS Safety Report 22115351 (Version 1)
Quarter: 2023Q1

REPORT INFORMATION
  Report Type: Spontaneous
  Country: US (occurrence: US)
  Receive Date: 20230320
  Receipt Date: 20230320
  Transmission Date: 20230417
  Serious: No
  Sender: FDA-Public Use
  Company Number: US-BAYER-2023A028127

PATIENT

DRUGS (1)
  1. MIRALAX [Suspect]
     Active Substance: POLYETHYLENE GLYCOL 3350
     Dosage: FOR 7 DAYS AND THEN STOPPED TAKING I JUST TOOK IT FOR 7 DAYS AND THEN STOPPED TAKING IT FOR 3 DAYS A

REACTIONS (1)
  - Frequent bowel movements [Unknown]
